FAERS Safety Report 8621527-2 (Version None)
Quarter: 2012Q3

REPORT INFORMATION
  Report Type: 
  Country: None (occurrence: None)
  Receive Date: 20120824
  Receipt Date: 20120820
  Transmission Date: 20120928
  Serious: Yes (Other)
  Sender: FDA-Public Use
  Company Number: GB-009507513-1208GBR008950

PATIENT

DRUGS (6)
  1. AMLODIPINE [Suspect]
  2. DIPYRIDAMOLE [Suspect]
  3. ATORVASTATIN [Suspect]
     Dosage: UNK
     Route: 048
     Dates: start: 20120710, end: 20120731
  4. ZOCOR [Suspect]
     Dosage: UNK
     Route: 048
     Dates: start: 20120310
  5. PERINDOPRIL ERBUMINE [Suspect]
  6. ASPIRIN [Suspect]
     Dosage: 75 MG, UNK

REACTIONS (3)
  - RENAL DISORDER [None]
  - MYALGIA [None]
  - ABDOMINAL PAIN [None]
